FAERS Safety Report 9186782 (Version 1)
Quarter: 2012Q4

REPORT INFORMATION
  Report Type: 
  Country: US (occurrence: US)
  Receive Date: 20121102
  Receipt Date: 20121102
  Transmission Date: 20130627
  Serious: No
  Sender: FDA-Public Use
  Company Number: US-PFIZER INC-2012271304

PATIENT
  Age: 33 Year
  Sex: Female

DRUGS (1)
  1. TOVIAZ [Suspect]
     Dosage: 8 mg, UNK

REACTIONS (2)
  - Drug effect decreased [Unknown]
  - Micturition urgency [Unknown]
